FAERS Safety Report 4436873-6 (Version None)
Quarter: 2004Q3

REPORT INFORMATION
  Report Type: 
  Country: None (occurrence: None)
  Receive Date: 20040726
  Receipt Date: 20040412
  Transmission Date: 20050211
  Serious: No
  Sender: FDA-Public Use
  Company Number: USA040362808

PATIENT
  Age: 75 Year
  Sex: Female

DRUGS (4)
  1. FORTEO [Suspect]
     Indication: OSTEOPOROSIS
     Dates: start: 20040301
  2. NEURONTIN [Concomitant]
  3. ULTRAM [Concomitant]
  4. CLONAZEPAM [Concomitant]

REACTIONS (3)
  - INJECTION SITE STINGING [None]
  - MUSCLE CRAMP [None]
  - SOMNOLENCE [None]
